FAERS Safety Report 5047119-2 (Version None)
Quarter: 2006Q3

REPORT INFORMATION
  Report Type: 
  Country: None (occurrence: None)
  Receive Date: 20060703
  Receipt Date: 20060623
  Transmission Date: 20061208
  Serious: Yes (Hospitalization)
  Sender: FDA-Public Use
  Company Number: 2006078869

PATIENT
  Age: 48 Year
  Sex: Male

DRUGS (2)
  1. ZMAX [Suspect]
     Indication: UPPER RESPIRATORY TRACT INFECTION
     Dosage: 2 GRAM (2 GRAM, 1 IN 1 TOTAL), ORAL
     Route: 048
     Dates: start: 20060622, end: 20060622
  2. SINUTAB [Concomitant]

REACTIONS (6)
  - ABDOMINAL PAIN [None]
  - DIARRHOEA [None]
  - HEAD INJURY [None]
  - LOSS OF CONSCIOUSNESS [None]
  - SKIN LACERATION [None]
  - VOMITING [None]
